FAERS Safety Report 13726752 (Version 4)
Quarter: 2017Q3

REPORT INFORMATION
  Report Type: Spontaneous
  Country: US (occurrence: US)
  Receive Date: 20170706
  Receipt Date: 20170811
  Transmission Date: 20171127
  Serious: No
  Sender: FDA-Public Use
  Company Number: US-PFIZER INC-2017291021

PATIENT
  Age: 74 Year
  Sex: Female

DRUGS (1)
  1. IBRANCE [Suspect]
     Active Substance: PALBOCICLIB
     Indication: BREAST CANCER FEMALE
     Dosage: 100 MG, CYCLIC (1 QD, 21 ON / 7 OFF)
     Route: 048
     Dates: start: 201705, end: 20170714

REACTIONS (5)
  - Vomiting [Unknown]
  - Mouth injury [Unknown]
  - Nausea [Unknown]
  - Chapped lips [Unknown]
  - Dry mouth [Unknown]

NARRATIVE: CASE EVENT DATE: 20170630
